FAERS Safety Report 5237666-2 (Version None)
Quarter: 2007Q1

REPORT INFORMATION
  Report Type: 
  Country: None (occurrence: None)
  Receive Date: 20070214
  Receipt Date: 20070130
  Transmission Date: 20070707
  Serious: Yes (Hospitalization)
  Sender: FDA-Public Use
  Company Number: DE-AMGEN-UK208948

PATIENT
  Age: 78 Year
  Sex: Male

DRUGS (3)
  1. KINERET [Suspect]
     Indication: RHEUMATOID ARTHRITIS
     Route: 065
     Dates: start: 20060501, end: 20060601
  2. ADALIMUMAB [Concomitant]
     Route: 065
     Dates: start: 20040701, end: 20041001
  3. METHOTREXATE [Concomitant]
     Route: 065

REACTIONS (1)
  - PROSTATIC OPERATION [None]
